FAERS Safety Report 18339607 (Version 1)
Quarter: 2020Q4

REPORT INFORMATION
  Report Type: Report from Study
  Country: CA (occurrence: CA)
  Receive Date: 20201002
  Receipt Date: 20201002
  Transmission Date: 20210113
  Serious: Yes (Other)
  Sender: FDA-Public Use
  Company Number: CA-BAYER-2020-062369

PATIENT
  Sex: Female

DRUGS (5)
  1. STIVARGA [Suspect]
     Active Substance: REGORAFENIB
     Indication: METASTATIC NEOPLASM
     Dosage: 120 MG DAILY
  2. STIVARGA [Suspect]
     Active Substance: REGORAFENIB
     Indication: METASTATIC NEOPLASM
     Dosage: UNK
  3. STIVARGA [Suspect]
     Active Substance: REGORAFENIB
     Indication: METASTATIC NEOPLASM
     Dosage: UNK
  4. STIVARGA [Suspect]
     Active Substance: REGORAFENIB
     Indication: METASTATIC NEOPLASM
     Dosage: 80 MG, QD DAILY AND 7 DAYS OFF
     Dates: start: 20200805
  5. STIVARGA [Suspect]
     Active Substance: REGORAFENIB
     Indication: METASTATIC NEOPLASM
     Dosage: UNK

REACTIONS (5)
  - Surgery [None]
  - White blood cell count decreased [None]
  - Product use in unapproved indication [Unknown]
  - Off label use [Unknown]
  - Body temperature increased [Unknown]
